FAERS Safety Report 17291689 (Version 1)
Quarter: 2020Q1

REPORT INFORMATION
  Report Type: Spontaneous
  Country: US (occurrence: US)
  Receive Date: 20200118
  Receipt Date: 20200118
  Transmission Date: 20200409
  Serious: No
  Sender: FDA-Public Use
  Company Number: None

PATIENT
  Age: 41 Year
  Sex: Female
  Weight: 123.75 kg

DRUGS (14)
  1. OMEPRAZOLE. [Concomitant]
     Active Substance: OMEPRAZOLE
  2. ACETAZOLAMIDE (DIAMOX) [Concomitant]
  3. PIOGLITAZONE. [Concomitant]
     Active Substance: PIOGLITAZONE
  4. VITAMIN D [Concomitant]
     Active Substance: VITAMIN D NOS
  5. EXCEDRIN TENSION HEADACHE [Concomitant]
     Active Substance: ACETAMINOPHEN\CAFFEINE
  6. LEVOTHYROXINE. [Concomitant]
     Active Substance: LEVOTHYROXINE
  7. TRAZODONE [Concomitant]
     Active Substance: TRAZODONE HYDROCHLORIDE
  8. LIDOCAINE PATCH [Concomitant]
     Active Substance: LIDOCAINE
  9. CENTRUM MULTIVITAMIN [Concomitant]
  10. TRIAMCINOLONE 0.1% [Concomitant]
     Active Substance: TRIAMCINOLONE
  11. EMGALITY [Suspect]
     Active Substance: GALCANEZUMAB-GNLM
     Indication: HEADACHE
     Dosage: ?          QUANTITY:1 INJECTION(S);OTHER FREQUENCY:1 PER MONTH;?
     Route: 030
     Dates: start: 20191015, end: 20191227
  12. SERTRALINE [Concomitant]
     Active Substance: SERTRALINE HYDROCHLORIDE
  13. IRON [Concomitant]
     Active Substance: IRON
  14. LACTASE ENXYME [Concomitant]

REACTIONS (11)
  - Joint injury [None]
  - Abdominal distension [None]
  - Constipation [None]
  - Weight increased [None]
  - Myalgia [None]
  - Diarrhoea [None]
  - Depression [None]
  - Nausea [None]
  - Feeling abnormal [None]
  - Decreased appetite [None]
  - Anxiety [None]

NARRATIVE: CASE EVENT DATE: 20200104
